FAERS Safety Report 6201572-7 (Version None)
Quarter: 2009Q2

REPORT INFORMATION
  Report Type: 
  Country: None (occurrence: None)
  Receive Date: 20090519
  Receipt Date: 20090511
  Transmission Date: 20091009
  Serious: Yes (Death, Other)
  Sender: FDA-Public Use
  Company Number: 2008JP005356

PATIENT
  Age: 72 Year
  Sex: Female
  Weight: 52 kg

DRUGS (9)
  1. PROGRAF [Suspect]
     Indication: RHEUMATOID ARTHRITIS
     Dosage: 2 MG, UID/QD, ORAL
     Route: 048
     Dates: start: 20050905, end: 20081027
  2. AMLODIN (AMLODIPINE BESILATE) TABLET [Concomitant]
  3. DIOVAN [Concomitant]
  4. BENET (RISEDRONATE SODIUM) TABLET [Concomitant]
  5. BUFFERIN TABLET [Concomitant]
  6. LENDORMIN (BROTIZOLAM) TABLET [Concomitant]
  7. PREDNISOLONE [Concomitant]
  8. SELBEX (TEPRENONE) CAPSULE [Concomitant]
  9. SOL MEDROL (METHYLPREDNISOLONE, SUCCINATE SODIUM) FORMULATION UNKNOWN [Concomitant]

REACTIONS (5)
  - HAEMODIALYSIS [None]
  - NASOPHARYNGITIS [None]
  - PULMONARY OEDEMA [None]
  - RENAL FAILURE ACUTE [None]
  - RESPIRATORY FAILURE [None]
